FAERS Safety Report 7311755-0 (Version None)
Quarter: 2011Q1

REPORT INFORMATION
  Report Type: 
  Country: None (occurrence: None)
  Receive Date: 20110224
  Receipt Date: 20110211
  Transmission Date: 20110831
  Serious: Yes (Hospitalization)
  Sender: FDA-Public Use
  Company Number: FR-BAYER-2010-002585

PATIENT
  Sex: Female

DRUGS (1)
  1. MIRENA [Suspect]
     Indication: PRODUCT USED FOR UNKNOWN INDICATION
     Dosage: 20 ?G, CONT
     Route: 015
     Dates: start: 20050101, end: 20091201

REACTIONS (4)
  - ABDOMINAL PAIN UPPER [None]
  - MIGRAINE WITH AURA [None]
  - PARAESTHESIA [None]
  - ARTHRALGIA [None]
